FAERS Safety Report 8025215-5 (Version None)
Quarter: 2012Q1

REPORT INFORMATION
  Report Type: 
  Country: None (occurrence: None)
  Receive Date: 20120105
  Receipt Date: 20120103
  Transmission Date: 20120608
  Serious: Yes (Death)
  Sender: FDA-Public Use
  Company Number: CA-ROCHE-1026478

PATIENT
  Sex: Male
  Weight: 79.4 kg

DRUGS (7)
  1. FRISIUM [Concomitant]
  2. AVASTIN [Suspect]
     Route: 042
     Dates: start: 20110808
  3. KEPPRA [Concomitant]
  4. ZANTAC [Concomitant]
  5. AVASTIN [Suspect]
     Route: 042
     Dates: start: 20110916, end: 20111104
  6. DECADRON [Concomitant]
  7. AVASTIN [Suspect]
     Indication: GLIOBLASTOMA
     Route: 042
     Dates: start: 20110405

REACTIONS (1)
  - DISEASE PROGRESSION [None]
